FAERS Safety Report 7678637-6 (Version None)
Quarter: 2011Q3

REPORT INFORMATION
  Report Type: 
  Country: None (occurrence: None)
  Receive Date: 20110811
  Receipt Date: 20110802
  Transmission Date: 20111222
  Serious: Yes (Other)
  Sender: FDA-Public Use
  Company Number: PHHY2011BR71499

PATIENT
  Sex: Male

DRUGS (4)
  1. LIPISTATI [Concomitant]
     Dosage: 80 MG, UNK
  2. AMLODIPINE BESYLATE [Suspect]
     Route: 048
  3. NORVASC [Concomitant]
  4. LIPISTATI [Concomitant]
     Dosage: 40 MG, UNK

REACTIONS (2)
  - OEDEMA PERIPHERAL [None]
  - ISCHAEMIC STROKE [None]
